FAERS Safety Report 12405954 (Version 2)
Quarter: 2017Q2

REPORT INFORMATION
  Report Type: Report from Study
  Country: US (occurrence: US)
  Receive Date: 20160526
  Receipt Date: 20170630
  Transmission Date: 20170830
  Serious: Yes (Other)
  Sender: FDA-Public Use
  Company Number: US-ROCHE-1732398

PATIENT
  Age: 51 Year
  Sex: Female
  Weight: 66.28 kg

DRUGS (70)
  1. NAB-PACLITAXEL [Suspect]
     Active Substance: PACLITAXEL
     Indication: BREAST CANCER METASTATIC
     Dosage: DATE OF MOST RECENT DOSE OF NAB-PACLITAXEL 104.7 MG/SQ.M PRIOR TO SAE ONSET 17 MAR 2016
     Route: 042
     Dates: start: 20151104
  2. PRILOSEC [Concomitant]
     Active Substance: OMEPRAZOLE MAGNESIUM
     Indication: DYSPHONIA
  3. PROCHLORPERAZINE. [Concomitant]
     Active Substance: PROCHLORPERAZINE
     Indication: VOMITING
  4. SODIUM CHLORIDE. [Concomitant]
     Active Substance: SODIUM CHLORIDE
     Indication: EPISTAXIS
  5. LIDOCAINE. [Concomitant]
     Active Substance: LIDOCAINE
     Indication: PROCTITIS
  6. ZOSYN [Concomitant]
     Active Substance: PIPERACILLIN SODIUM\TAZOBACTAM SODIUM
     Indication: INFECTION PROPHYLAXIS
     Route: 065
     Dates: start: 20160216
  7. FLUCONAZOLE. [Concomitant]
     Active Substance: FLUCONAZOLE
     Indication: PNEUMONIA
     Route: 065
     Dates: start: 20160220, end: 20160227
  8. VANCOMYCIN [Concomitant]
     Active Substance: VANCOMYCIN
     Indication: INFECTION PROPHYLAXIS
  9. VITAMIN C [Concomitant]
     Active Substance: ASCORBIC ACID
     Indication: NUTRITIONAL SUPPLEMENTATION
     Route: 065
     Dates: start: 20160217
  10. COMPAZINE [Concomitant]
     Active Substance: PROCHLORPERAZINE MALEATE
     Route: 065
     Dates: start: 201511
  11. NEOSPORIN (BACITRACIN/NEOMYCIN/POLYMYXIN B) [Concomitant]
     Indication: EPISTAXIS
  12. SODIUM CHLORIDE. [Concomitant]
     Active Substance: SODIUM CHLORIDE
     Indication: SINUS CONGESTION
     Route: 045
     Dates: start: 20151211
  13. OXYGEN. [Concomitant]
     Active Substance: OXYGEN
     Indication: SUPRAVENTRICULAR TACHYCARDIA
     Route: 065
     Dates: start: 20160216
  14. MAGNESIUM OXIDE. [Concomitant]
     Active Substance: MAGNESIUM OXIDE
     Route: 065
     Dates: start: 20160406
  15. SODIUM PHOSPHATE [Concomitant]
     Active Substance: SODIUM PHOSPHATE
     Indication: HYPOPHOSPHATAEMIA
     Route: 065
     Dates: start: 20160216, end: 20160220
  16. ALBUTEROL. [Concomitant]
     Active Substance: ALBUTEROL
     Indication: DYSPNOEA
     Route: 065
     Dates: start: 20160225, end: 20160229
  17. DOCUSATE [Concomitant]
     Active Substance: DOCUSATE
     Indication: CONSTIPATION
     Route: 065
     Dates: start: 20160218
  18. ATEZOLIZUMAB [Suspect]
     Active Substance: ATEZOLIZUMAB
     Indication: BREAST CANCER METASTATIC
     Dosage: DATE OF MOST RECENT DOSE OF BLINDED MPDL3280A PRIOR TO SAE ONSET 17 MAR 2016
     Route: 042
     Dates: start: 20151104
  19. ZYRTEC [Concomitant]
     Active Substance: CETIRIZINE HYDROCHLORIDE
     Indication: DYSPHONIA
  20. ZOFRAN [Concomitant]
     Active Substance: ONDANSETRON HYDROCHLORIDE
     Indication: PROPHYLAXIS OF NAUSEA AND VOMITING
     Route: 065
     Dates: start: 20151104
  21. ZOFRAN [Concomitant]
     Active Substance: ONDANSETRON HYDROCHLORIDE
     Indication: NAUSEA
  22. LIDOCAINE. [Concomitant]
     Active Substance: LIDOCAINE
     Indication: DYSPHAGIA
  23. VANCOMYCIN [Concomitant]
     Active Substance: VANCOMYCIN
     Indication: PNEUMONIA
     Route: 065
     Dates: start: 20160216, end: 20160220
  24. METOPROLOL. [Concomitant]
     Active Substance: METOPROLOL
     Indication: SUPRAVENTRICULAR TACHYCARDIA
     Route: 065
     Dates: start: 20160217, end: 20160321
  25. MILK OF MAGNESIA [Concomitant]
     Active Substance: MAGNESIUM HYDROXIDE
     Indication: CONSTIPATION
     Route: 065
     Dates: start: 20160218, end: 20160310
  26. AUGMENTIN [Concomitant]
     Active Substance: AMOXICILLIN\CLAVULANATE POTASSIUM
     Indication: PYREXIA
     Route: 048
     Dates: start: 20160321, end: 20160329
  27. BAKING SODA W/ SALINE [Concomitant]
     Indication: DYSPHONIA
  28. ZYRTEC [Concomitant]
     Active Substance: CETIRIZINE HYDROCHLORIDE
     Indication: SINUS CONGESTION
  29. GABAPENTIN. [Concomitant]
     Active Substance: GABAPENTIN
     Indication: PERIPHERAL SENSORY NEUROPATHY
     Route: 065
     Dates: start: 201407
  30. NORMAL SALINE [Concomitant]
     Active Substance: SODIUM CHLORIDE
     Indication: OROPHARYNGEAL PAIN
     Route: 065
     Dates: start: 20160301, end: 20160302
  31. POTASSIUM CHLORIDE. [Concomitant]
     Active Substance: POTASSIUM CHLORIDE
     Indication: HYPOKALAEMIA
     Route: 065
     Dates: start: 20160216, end: 20160220
  32. ACETAMINOPHEN. [Concomitant]
     Active Substance: ACETAMINOPHEN
     Indication: BACK PAIN
  33. LEVAQUIN [Concomitant]
     Active Substance: LEVOFLOXACIN
     Indication: PNEUMONIA
     Route: 042
     Dates: start: 20160321, end: 20160321
  34. CLOTRIMAZOLE. [Concomitant]
     Active Substance: CLOTRIMAZOLE
     Indication: ORAL CANDIDIASIS
     Route: 065
     Dates: start: 20160328
  35. DILAUDID [Concomitant]
     Active Substance: HYDROMORPHONE HYDROCHLORIDE
     Indication: BACK PAIN
  36. ZOFRAN [Concomitant]
     Active Substance: ONDANSETRON HYDROCHLORIDE
     Indication: VOMITING
  37. LIDOCAINE. [Concomitant]
     Active Substance: LIDOCAINE
     Indication: EPIGLOTTITIS
     Route: 065
     Dates: start: 20160324
  38. NORMAL SALINE [Concomitant]
     Active Substance: SODIUM CHLORIDE
     Indication: INFECTION
     Route: 065
     Dates: start: 20160216
  39. MAGNESIUM SULFATE. [Concomitant]
     Active Substance: MAGNESIUM SULFATE
     Indication: HYPOMAGNESAEMIA
     Route: 065
     Dates: start: 20160216, end: 20160220
  40. BENZONATATE. [Concomitant]
     Active Substance: BENZONATATE
     Indication: COUGH
     Route: 065
     Dates: start: 20160218
  41. DILAUDID [Concomitant]
     Active Substance: HYDROMORPHONE HYDROCHLORIDE
     Indication: BACK PAIN
     Route: 065
     Dates: start: 201406
  42. DILAUDID [Concomitant]
     Active Substance: HYDROMORPHONE HYDROCHLORIDE
     Indication: BACK PAIN
  43. IBUPROFEN. [Concomitant]
     Active Substance: IBUPROFEN
     Indication: BACK PAIN
     Route: 065
     Dates: start: 201406
  44. ROBITUSSIN DM [Concomitant]
     Active Substance: DEXTROMETHORPHAN HYDROBROMIDE\GUAIFENESIN
     Indication: COUGH
     Route: 065
     Dates: start: 20151001
  45. PROCHLORPERAZINE. [Concomitant]
     Active Substance: PROCHLORPERAZINE
     Indication: NAUSEA
     Route: 065
     Dates: start: 20151104
  46. MUCINEX [Concomitant]
     Active Substance: GUAIFENESIN
     Indication: SINUS CONGESTION
     Route: 065
     Dates: start: 20151223
  47. MUCINEX [Concomitant]
     Active Substance: GUAIFENESIN
     Indication: COUGH
     Route: 065
     Dates: start: 20160218
  48. NORMAL SALINE [Concomitant]
     Active Substance: SODIUM CHLORIDE
     Indication: HYPOTENSION
  49. POTASSIUM CHLORIDE. [Concomitant]
     Active Substance: POTASSIUM CHLORIDE
     Route: 065
     Dates: start: 20160329
  50. MAGNESIUM SULFATE. [Concomitant]
     Active Substance: MAGNESIUM SULFATE
     Route: 065
     Dates: start: 20160330, end: 20160331
  51. CARISOPRODOL. [Concomitant]
     Active Substance: CARISOPRODOL
     Indication: BACK PAIN
     Route: 065
     Dates: start: 20160220
  52. LEVAQUIN [Concomitant]
     Active Substance: LEVOFLOXACIN
     Indication: COUGH
     Route: 065
     Dates: start: 20160509, end: 20160519
  53. BAKING SODA W/ SALINE [Concomitant]
     Indication: OROPHARYNGEAL PAIN
     Route: 065
     Dates: start: 20151211
  54. ZYRTEC [Concomitant]
     Active Substance: CETIRIZINE HYDROCHLORIDE
     Indication: HYPERSENSITIVITY
     Route: 065
     Dates: start: 20151027
  55. VANCOMYCIN [Concomitant]
     Active Substance: VANCOMYCIN
     Indication: OROPHARYNGEAL PAIN
  56. ZOSYN [Concomitant]
     Active Substance: PIPERACILLIN SODIUM\TAZOBACTAM SODIUM
     Indication: OROPHARYNGEAL PAIN
  57. NEULASTA [Concomitant]
     Active Substance: PEGFILGRASTIM
     Indication: INFECTION PROPHYLAXIS
     Route: 065
     Dates: start: 20160318, end: 20160318
  58. MAGNESIUM OXIDE. [Concomitant]
     Active Substance: MAGNESIUM OXIDE
     Indication: HYPOMAGNESAEMIA
     Route: 065
     Dates: start: 20160216, end: 20160225
  59. VALIUM [Concomitant]
     Active Substance: DIAZEPAM
     Indication: ANXIETY
     Route: 065
     Dates: start: 20160220
  60. VITAMIN D3 [Concomitant]
     Active Substance: CHOLECALCIFEROL
     Indication: NUTRITIONAL SUPPLEMENTATION
     Route: 065
     Dates: start: 20160217
  61. BACTRIM [Concomitant]
     Active Substance: SULFAMETHOXAZOLE\TRIMETHOPRIM
     Indication: URINARY TRACT INFECTION
     Route: 065
     Dates: start: 20160425, end: 20160503
  62. ACETAMINOPHEN. [Concomitant]
     Active Substance: ACETAMINOPHEN
     Indication: BACK PAIN
     Route: 065
     Dates: start: 20160218
  63. NEOSPORIN (BACITRACIN/NEOMYCIN/POLYMYXIN B) [Concomitant]
     Indication: PROCTITIS
     Route: 065
     Dates: start: 20160321
  64. PRILOSEC [Concomitant]
     Active Substance: OMEPRAZOLE MAGNESIUM
     Indication: GASTROOESOPHAGEAL REFLUX DISEASE
     Route: 065
     Dates: start: 201509
  65. LIDOCAINE. [Concomitant]
     Active Substance: LIDOCAINE
     Indication: OROPHARYNGEAL PAIN
     Route: 065
     Dates: start: 20160120
  66. VANCOMYCIN [Concomitant]
     Active Substance: VANCOMYCIN
     Indication: INFECTION PROPHYLAXIS
     Route: 065
     Dates: start: 20160216
  67. NEULASTA [Concomitant]
     Active Substance: PEGFILGRASTIM
     Indication: OROPHARYNGEAL PAIN
  68. CARISOPRODOL. [Concomitant]
     Active Substance: CARISOPRODOL
     Indication: BACK PAIN
  69. MARINOL [Concomitant]
     Active Substance: DRONABINOL
     Indication: NAUSEA
     Route: 065
     Dates: start: 20160406
  70. LEVAQUIN [Concomitant]
     Active Substance: LEVOFLOXACIN
     Indication: PYREXIA
     Route: 042
     Dates: start: 20160220, end: 20160223

REACTIONS (1)
  - Adverse drug reaction [Not Recovered/Not Resolved]

NARRATIVE: CASE EVENT DATE: 20160321
